FAERS Safety Report 19415767 (Version 2)
Quarter: 2021Q3

REPORT INFORMATION
  Report Type: Spontaneous
  Country: US (occurrence: US)
  Receive Date: 20210615
  Receipt Date: 20210706
  Transmission Date: 20211014
  Serious: No
  Sender: FDA-Public Use
  Company Number: US-AMGEN-USASP2021090666

PATIENT
  Age: 54 Year
  Sex: Female

DRUGS (6)
  1. AMOXICILLIN. [Concomitant]
     Active Substance: AMOXICILLIN
  2. CLOBETASOL [Concomitant]
     Active Substance: CLOBETASOL
  3. OTEZLA [Suspect]
     Active Substance: APREMILAST
     Indication: PSORIASIS
     Dosage: 30 MILLIGRAM, BID
     Route: 048
     Dates: start: 20210419
  4. METFORMIN [Suspect]
     Active Substance: METFORMIN HYDROCHLORIDE
     Indication: DIABETES MELLITUS
     Dosage: UNK
     Route: 065
     Dates: start: 2021, end: 2021
  5. BENZONATATE. [Concomitant]
     Active Substance: BENZONATATE
  6. LISINOPRIL. [Concomitant]
     Active Substance: LISINOPRIL

REACTIONS (2)
  - Diarrhoea [Recovered/Resolved]
  - Product dose omission issue [Not Recovered/Not Resolved]

NARRATIVE: CASE EVENT DATE: 2021
